FAERS Safety Report 4466140-6 (Version None)
Quarter: 2004Q4

REPORT INFORMATION
  Report Type: 
  Country: None (occurrence: None)
  Receive Date: 20041005
  Receipt Date: 20040923
  Transmission Date: 20050328
  Serious: Yes (Death)
  Sender: FDA-Public Use
  Company Number: US-JNJFOC-20040908252

PATIENT
  Age: 42 Year

DRUGS (2)
  1. FENTANYL [Suspect]
     Indication: INTENTIONAL MISUSE
     Route: 049
  2. AMITRIPTYLINE HCL [Suspect]
     Indication: INTENTIONAL MISUSE
     Route: 065

REACTIONS (3)
  - CARDIO-RESPIRATORY ARREST [None]
  - COMPLETED SUICIDE [None]
  - INTENTIONAL OVERDOSE [None]
